FAERS Safety Report 13139677 (Version 2)
Quarter: 2017Q1

REPORT INFORMATION
  Report Type: Spontaneous
  Country: PL (occurrence: PL)
  Receive Date: 20170123
  Receipt Date: 20170227
  Transmission Date: 20170428
  Serious: Yes (Hospitalization)
  Sender: FDA-Public Use
  Company Number: PL-TEVA-730922ISR

PATIENT
  Age: 92 Year
  Sex: Female

DRUGS (4)
  1. BUPRENORPHINE. [Suspect]
     Active Substance: BUPRENORPHINE
     Dosage: 35 MICROGRAM DAILY;
     Route: 062
  2. BUPRENORPHINE. [Suspect]
     Active Substance: BUPRENORPHINE
     Dosage: 52.5 MICROGRAM DAILY;
     Route: 062
  3. MORPHINE [Suspect]
     Active Substance: MORPHINE
     Route: 058
  4. MORPHINE [Suspect]
     Active Substance: MORPHINE
     Route: 058

REACTIONS (6)
  - Pain [Unknown]
  - Somnolence [Unknown]
  - Therapy change [Unknown]
  - Inadequate analgesia [Unknown]
  - Drug ineffective [Unknown]
  - Illogical thinking [Unknown]
